FAERS Safety Report 8814911 (Version 1)
Quarter: 2012Q4

REPORT INFORMATION
  Report Type: 
  Country: US (occurrence: US)
  Receive Date: 20120928
  Receipt Date: 20120928
  Transmission Date: 20130627
  Serious: No
  Sender: FDA-Public Use
  Company Number: US-PFIZER INC-2012237987

PATIENT
  Age: 2 Year
  Sex: Male
  Weight: 10.88 kg

DRUGS (3)
  1. VFEND [Suspect]
     Indication: PROPHYLAXIS
     Dosage: unknown dose and frequency
  2. VFEND [Suspect]
     Dosage: 150 mg, every twelve hours
     Dates: start: 201209, end: 20120917
  3. VFEND [Suspect]
     Dosage: again increased to unknown dose (stated as 10mg/kg) every 8 hours
     Dates: start: 20120917

REACTIONS (2)
  - Drug prescribing error [Unknown]
  - Drug level decreased [Unknown]
